FAERS Safety Report 20561766 (Version 1)
Quarter: 2022Q1

REPORT INFORMATION
  Report Type: Spontaneous
  Country: US (occurrence: None)
  Receive Date: 20220307
  Receipt Date: 20220307
  Transmission Date: 20220423
  Serious: Yes (Life-Threatening, Other)
  Sender: FDA-Public Use
  Company Number: None

PATIENT
  Age: 62 Year
  Sex: Female
  Weight: 61.23 kg

DRUGS (2)
  1. XTAMPZA [Suspect]
     Active Substance: OXYCODONE
     Dosage: FREQUENCY : TWICE A DAY;?
     Route: 048
     Dates: start: 20220105, end: 20220202
  2. NUCYNTA ER [Suspect]
     Active Substance: TAPENTADOL HYDROCHLORIDE
     Dates: start: 20220105, end: 20220205

REACTIONS (2)
  - Asthma [None]
  - Dyspnoea [None]

NARRATIVE: CASE EVENT DATE: 20220202
